FAERS Safety Report 19162842 (Version 1)
Quarter: 2021Q2

REPORT INFORMATION
  Report Type: Spontaneous
  Country: DE (occurrence: DE)
  Receive Date: 20210421
  Receipt Date: 20210421
  Transmission Date: 20210717
  Serious: Yes (Hospitalization, Other)
  Sender: FDA-Public Use
  Company Number: DE-UCBSA-2021017336

PATIENT
  Age: 79 Year
  Sex: Female

DRUGS (12)
  1. IPILIMUMAB [Suspect]
     Active Substance: IPILIMUMAB
     Dosage: 172.50 MILLIGRAM, Q3WK
     Route: 042
     Dates: start: 20190301, end: 20190301
  2. LEVETIRACETAM. [Concomitant]
     Active Substance: LEVETIRACETAM
     Indication: PRODUCT USED FOR UNKNOWN INDICATION
     Dosage: UNK
     Route: 065
  3. IPILIMUMAB [Suspect]
     Active Substance: IPILIMUMAB
     Indication: MALIGNANT MELANOMA
     Dosage: 171 MILLIGRAM, Q3WK
     Route: 042
     Dates: start: 20190329, end: 20190329
  4. MYCOPHENOLATE SODIUM [Concomitant]
     Active Substance: MYCOPHENOLATE SODIUM
     Indication: PRODUCT USED FOR UNKNOWN INDICATION
     Dosage: UNK
  5. KEPPRA [Suspect]
     Active Substance: LEVETIRACETAM
     Indication: PRODUCT USED FOR UNKNOWN INDICATION
     Dosage: UNK
  6. NIVOLUMAB [Suspect]
     Active Substance: NIVOLUMAB
     Dosage: 57.5 MILLIGRAM, Q3WK
     Route: 042
     Dates: start: 20190301, end: 20190301
  7. IPILIMUMAB [Suspect]
     Active Substance: IPILIMUMAB
     Dosage: 174 MILLIGRAM, Q3WK
     Route: 042
     Dates: start: 20190201, end: 20190201
  8. NIVOLUMAB [Suspect]
     Active Substance: NIVOLUMAB
     Dosage: 57 MILLIGRAM, Q3WK
     Route: 042
     Dates: start: 20190329, end: 20190329
  9. KALIUMCHLORID [Concomitant]
     Active Substance: POTASSIUM CHLORIDE
     Indication: PRODUCT USED FOR UNKNOWN INDICATION
     Dosage: UNK
     Route: 065
  10. LACOSAMIDE. [Concomitant]
     Active Substance: LACOSAMIDE
     Indication: PRODUCT USED FOR UNKNOWN INDICATION
     Dosage: UNK
  11. NIVOLUMAB [Suspect]
     Active Substance: NIVOLUMAB
     Indication: MALIGNANT MELANOMA
     Dosage: 57 MILLIGRAM, Q3WK
     Route: 042
     Dates: start: 20190201, end: 20190201
  12. NATRIUMCHLORIDE [Concomitant]
     Active Substance: SODIUM CHLORIDE
     Indication: PRODUCT USED FOR UNKNOWN INDICATION
     Dosage: UNK
     Route: 065

REACTIONS (13)
  - Cognitive disorder [Recovered/Resolved]
  - Metastases to central nervous system [Unknown]
  - Pruritus [Recovered/Resolved]
  - Fatigue [Recovering/Resolving]
  - Muscle spasticity [Recovered/Resolved]
  - Diarrhoea [Recovered/Resolved]
  - Seizure [Recovered/Resolved]
  - Iron deficiency anaemia [Recovering/Resolving]
  - Fall [Unknown]
  - Rash [Recovered/Resolved]
  - Headache [Recovered/Resolved]
  - Autoimmune colitis [Unknown]
  - Hyperthyroidism [Recovering/Resolving]

NARRATIVE: CASE EVENT DATE: 20190205
